FAERS Safety Report 14020086 (Version 3)
Quarter: 2018Q3

REPORT INFORMATION
  Report Type: Report from Study
  Country: US (occurrence: US)
  Receive Date: 20170928
  Receipt Date: 20180901
  Transmission Date: 20181010
  Serious: Yes (Other)
  Sender: FDA-Public Use
  Company Number: US-AMGEN-USASL2017143936

PATIENT
  Age: 59 Year
  Sex: Male

DRUGS (2)
  1. REPATHA [Suspect]
     Active Substance: EVOLOCUMAB
     Indication: HYPERLIPIDAEMIA
  2. REPATHA [Suspect]
     Active Substance: EVOLOCUMAB
     Indication: BLOOD CHOLESTEROL INCREASED
     Dosage: 140 MG, Q2WK
     Route: 065

REACTIONS (7)
  - Oesophageal mass [Unknown]
  - Dysphonia [Unknown]
  - Coeliac disease [Unknown]
  - Gastrooesophageal reflux disease [Unknown]
  - Speech disorder [Unknown]
  - Ill-defined disorder [Unknown]
  - Medical device implantation [Unknown]

NARRATIVE: CASE EVENT DATE: 2017
